FAERS Safety Report 17688684 (Version 1)
Quarter: 2020Q2

REPORT INFORMATION
  Report Type: Spontaneous
  Country: US (occurrence: US)
  Receive Date: 20200420
  Receipt Date: 20200420
  Transmission Date: 20200714
  Serious: No
  Sender: FDA-Public Use
  Company Number: None

PATIENT
  Age: 63 Year
  Sex: Female

DRUGS (2)
  1. CAPECITABINE ++ 500MG ROXANE [Suspect]
     Active Substance: CAPECITABINE
     Indication: COLON CANCER
     Route: 048
     Dates: start: 20200401
  2. CAPECITABINE ++# 150MG [Suspect]
     Active Substance: CAPECITABINE
     Indication: COLON CANCER
     Route: 048
     Dates: start: 20200401

REACTIONS (5)
  - Asthenia [None]
  - Lip pain [None]
  - Abdominal pain upper [None]
  - Rash [None]
  - Diarrhoea [None]

NARRATIVE: CASE EVENT DATE: 202004
